FAERS Safety Report 13910640 (Version 2)
Quarter: 2017Q3

REPORT INFORMATION
  Report Type: Report from Study
  Country: US (occurrence: US)
  Receive Date: 20170828
  Receipt Date: 20170906
  Transmission Date: 20171127
  Serious: Yes (Death, Other)
  Sender: FDA-Public Use
  Company Number: US-MYLANLABS-2017M1052811

PATIENT
  Age: 56 Year
  Sex: Male

DRUGS (3)
  1. CYCLOPHOSPHAMIDE. [Suspect]
     Active Substance: CYCLOPHOSPHAMIDE
     Indication: MALIGNANT MELANOMA
     Dosage: 60 MG/KG DAILY FOR 2 DAYS
     Route: 042
  2. FLUDARABINE [Suspect]
     Active Substance: FLUDARABINE PHOSPHATE
     Indication: MALIGNANT MELANOMA
     Dosage: 25 MG/M2 DAILY FOR 5 DAYS
     Route: 065
  3. INTERLEUKIN-2 [Concomitant]
     Active Substance: ALDESLEUKIN
     Indication: MALIGNANT MELANOMA
     Dosage: HIGH-DOSE 720000 IU/KG EVERY 8 HOURS
     Route: 065

REACTIONS (7)
  - Multiple organ dysfunction syndrome [Fatal]
  - Pneumonia respiratory syncytial viral [Fatal]
  - Arrhythmia [Unknown]
  - Nervous system disorder [Unknown]
  - Ischaemia [Unknown]
  - Sepsis [Fatal]
  - Neutropenia [Fatal]
